FAERS Safety Report 6534476-0 (Version None)
Quarter: 2010Q1

REPORT INFORMATION
  Report Type: 
  Country: None (occurrence: None)
  Receive Date: 20100112
  Receipt Date: 20100106
  Transmission Date: 20100710
  Serious: Yes (Other)
  Sender: FDA-Public Use
  Company Number: JP-BRISTOL-MYERS SQUIBB COMPANY-14801195

PATIENT
  Age: 76 Year
  Sex: Female
  Weight: 50 kg

DRUGS (5)
  1. ERBITUX [Suspect]
     Indication: COLON CANCER
     Dosage: 05AUG09-05AUG09:400MG/M2 12AUG09-ONG:250MG/M2 RECENT INF:02SEP09(4TH INF)
     Route: 042
     Dates: start: 20090805
  2. IRINOTECAN HCL [Concomitant]
     Indication: COLON CANCER
     Dosage: RECENT INF:26AUG09(2ND INF)
     Route: 042
     Dates: start: 20090805
  3. POLARAMINE [Concomitant]
     Indication: PREMEDICATION
     Route: 042
     Dates: start: 20090805
  4. DEXART [Concomitant]
     Indication: PREMEDICATION
     Route: 042
     Dates: start: 20090805
  5. GRANISETRON [Concomitant]
     Indication: ANTIEMETIC SUPPORTIVE CARE
     Route: 042

REACTIONS (2)
  - KERATITIS [None]
  - ULCERATIVE KERATITIS [None]
